FAERS Safety Report 12482233 (Version 18)
Quarter: 2016Q3

REPORT INFORMATION
  Report Type: Report from Study
  Country: US (occurrence: US)
  Receive Date: 20160620
  Receipt Date: 20160909
  Transmission Date: 20161109
  Serious: Yes (Hospitalization)
  Sender: FDA-Public Use
  Company Number: PHHO2016US007957

PATIENT
  Age: 70 Year
  Sex: Male
  Weight: 72.9 kg

DRUGS (10)
  1. MARINOL [Suspect]
     Active Substance: DRONABINOL
     Indication: NAUSEA
     Dosage: 5 MG, BID
     Route: 048
     Dates: start: 20160524, end: 20160528
  2. CICLOSPORIN [Concomitant]
     Active Substance: CYCLOSPORINE
     Dosage: 25 MG, QD
     Route: 048
     Dates: start: 20160701, end: 20160705
  3. BLINDED CSJ148 [Suspect]
     Active Substance: INVESTIGATIONAL PRODUCT
     Indication: CYTOMEGALOVIRUS INFECTION
     Dosage: CODE NOT BROKEN
     Route: 042
     Dates: start: 20160607
  4. ATIVAN [Concomitant]
     Active Substance: LORAZEPAM
     Indication: NAUSEA
     Dosage: 1 DF(0.05-1 MG), PRN
     Route: 048
     Dates: start: 20150517
  5. SCOPOLAMINE [Suspect]
     Active Substance: SCOPOLAMINE
     Indication: NAUSEA
     Dosage: 1.5 MG, Q3 DAYS
     Route: 062
     Dates: start: 20160523, end: 20160530
  6. COMPAZINE [Concomitant]
     Active Substance: PROCHLORPERAZINE MALEATE
     Indication: NAUSEA
     Dosage: 10 MG, PRN
     Route: 048
     Dates: start: 20160520
  7. CICLOSPORIN [Concomitant]
     Active Substance: CYCLOSPORINE
     Indication: PROPHYLAXIS
     Dosage: 75 MG, QD (50 MG IN AM, 25 MG IN PM)
     Route: 048
     Dates: start: 20160610, end: 20160620
  8. FLOMAX [Concomitant]
     Active Substance: TAMSULOSIN HYDROCHLORIDE
     Indication: BENIGN PROSTATIC HYPERPLASIA
     Dosage: 0.4 MG, QD
     Route: 048
     Dates: start: 201509, end: 20160612
  9. BLINDED PLACEBO [Suspect]
     Active Substance: INVESTIGATIONAL PRODUCT
     Indication: CYTOMEGALOVIRUS INFECTION
     Dosage: CODE NOT BROKEN
     Route: 042
     Dates: start: 20160607
  10. BLINDED NO TREATMENT RECEIVED [Suspect]
     Active Substance: INVESTIGATIONAL PRODUCT
     Indication: CYTOMEGALOVIRUS INFECTION
     Dosage: CODE NOT BROKEN
     Route: 042
     Dates: start: 20160607

REACTIONS (3)
  - Pyrexia [Recovering/Resolving]
  - Dehydration [Recovered/Resolved]
  - Pyrexia [Recovered/Resolved]

NARRATIVE: CASE EVENT DATE: 20160529
